FAERS Safety Report 5457373-0 (Version None)
Quarter: 2007Q3

REPORT INFORMATION
  Report Type: 
  Country: None (occurrence: None)
  Receive Date: 20070918
  Receipt Date: 20070910
  Transmission Date: 20080115
  Serious: Yes (Life-Threatening, Hospitalization, Other)
  Sender: FDA-Public Use
  Company Number: JP-PFIZER INC-2007068669

PATIENT
  Age: 54 Year
  Sex: Female

DRUGS (7)
  1. ZYVOX [Suspect]
     Indication: STAPHYLOCOCCAL INFECTION
     Route: 042
     Dates: start: 20070815, end: 20070817
  2. LOXONIN [Concomitant]
     Route: 048
  3. MYONAL [Concomitant]
     Route: 048
  4. AMARYL [Concomitant]
     Route: 048
     Dates: start: 20070808, end: 20070817
  5. FLOMOX [Concomitant]
     Indication: INFECTION
     Route: 048
     Dates: start: 20070808, end: 20070814
  6. PENTCILLIN [Concomitant]
     Indication: INFECTION
     Route: 042
     Dates: start: 20070809, end: 20070815
  7. NOVOLIN R [Concomitant]
     Route: 058

REACTIONS (1)
  - EPILEPSY [None]
